FAERS Safety Report 9828746 (Version 2)
Quarter: 2014Q1

REPORT INFORMATION
  Report Type: Other
  Country: US (occurrence: US)
  Receive Date: 20140117
  Receipt Date: 20140117
  Transmission Date: 20141002
  Serious: Yes (Hospitalization)
  Sender: FDA-Public Use
  Company Number: US-ACORDA-ACO_38440_2013

PATIENT
  Age: 57 Year
  Sex: Female

DRUGS (1)
  1. AMPYRA [Suspect]
     Indication: PRODUCT USED FOR UNKNOWN INDICATION
     Dosage: 10 MG, Q 12 HRS
     Route: 048
     Dates: start: 201007

REACTIONS (12)
  - Spinal operation [Unknown]
  - Muscle spasticity [Unknown]
  - Pain in extremity [Unknown]
  - Muscular weakness [Unknown]
  - Fall [Unknown]
  - Sensory disturbance [Unknown]
  - Walking aid user [Unknown]
  - Spider vein [Unknown]
  - Joint injury [Unknown]
  - Gait disturbance [Unknown]
  - Coordination abnormal [Unknown]
  - Drug dose omission [Unknown]
